FAERS Safety Report 5033487-4 (Version None)
Quarter: 2006Q2

REPORT INFORMATION
  Report Type: 
  Country: None (occurrence: None)
  Receive Date: 20060621
  Receipt Date: 20060607
  Transmission Date: 20061013
  Serious: Yes (Life-Threatening, Hospitalization)
  Sender: FDA-Public Use
  Company Number: US017734

PATIENT
  Age: 26 Year
  Sex: Male
  Weight: 142.8831 kg

DRUGS (9)
  1. ACTIQ [Suspect]
     Indication: BACK PAIN
     Dosage: 1200 UG QID BUCCAL
     Route: 002
     Dates: start: 20051001, end: 20051101
  2. ACTIQ [Suspect]
     Indication: SURGERY
     Dosage: 1200 UG QID BUCCAL
     Route: 002
     Dates: start: 20051001, end: 20051101
  3. ACTIQ [Suspect]
     Indication: BACK PAIN
     Dosage: 1200 UG QID BUCCAL
     Route: 002
     Dates: start: 20060525, end: 20060527
  4. ACTIQ [Suspect]
     Indication: SURGERY
     Dosage: 1200 UG QID BUCCAL
     Route: 002
     Dates: start: 20060525, end: 20060527
  5. EFFEXOR [Concomitant]
  6. DIOVAN [Concomitant]
  7. KADIAN ^KNOLL^ [Concomitant]
  8. ACTIQ [Suspect]
     Indication: BACK PAIN
     Dosage: 16800 UG QD BUCCAL
     Route: 002
     Dates: start: 20060528, end: 20060528
  9. ACTIQ [Suspect]
     Indication: SURGERY
     Dosage: 16800 UG QD BUCCAL
     Route: 002
     Dates: start: 20060528, end: 20060528

REACTIONS (11)
  - ACCIDENTAL OVERDOSE [None]
  - BLOOD PRESSURE DECREASED [None]
  - DEPENDENCE [None]
  - DIARRHOEA [None]
  - DYSARTHRIA [None]
  - HEART RATE INCREASED [None]
  - HYPERHIDROSIS [None]
  - HYPOREFLEXIA [None]
  - LOSS OF CONSCIOUSNESS [None]
  - OXYGEN SATURATION DECREASED [None]
  - RESPIRATORY RATE DECREASED [None]
